FAERS Safety Report 24414625 (Version 1)
Quarter: 2024Q4

REPORT INFORMATION
  Report Type: Spontaneous
  Country: US (occurrence: US)
  Receive Date: 20241009
  Receipt Date: 20241009
  Transmission Date: 20250114
  Serious: No
  Sender: ROCHE
  Company Number: US-ROCHE-10000098285

PATIENT
  Age: 57 Year
  Sex: Male
  Weight: 154.22 kg

DRUGS (11)
  1. ACTEMRA ACTPEN [Suspect]
     Active Substance: TOCILIZUMAB
     Indication: Giant cell arteritis
     Route: 058
     Dates: start: 20240917
  2. PREDNISONE [Concomitant]
     Active Substance: PREDNISONE
     Indication: Giant cell arteritis
     Dosage: STARTED BEFORE ACTEMRA
     Route: 048
     Dates: start: 20240817
  3. PREDNISONE [Concomitant]
     Active Substance: PREDNISONE
     Dosage: STARTED BEFORE ACTEMRA
     Route: 048
     Dates: start: 20240810, end: 20240816
  4. ZEPBOUND [Concomitant]
     Active Substance: TIRZEPATIDE
     Indication: Weight decreased
     Dosage: STARTED BEFORE ACTEMRA
     Route: 058
  5. NEXIUM [Concomitant]
     Active Substance: ESOMEPRAZOLE MAGNESIUM
     Dosage: STARTED BEFORE ACTEMRA
     Route: 048
  6. BACTRIM [Concomitant]
     Active Substance: SULFAMETHOXAZOLE\TRIMETHOPRIM
     Dosage: STARTED BEFORE ACTEMRA
     Route: 048
  7. OMEGA-3 FATTY ACIDS [Concomitant]
     Active Substance: OMEGA-3 FATTY ACIDS
     Indication: Inflammation
     Dosage: (2) 1000 MG CAPSULES
     Route: 048
     Dates: start: 202408
  8. ASPIRIN [Concomitant]
     Active Substance: ASPIRIN
     Dosage: STARTED BEFORE ACTEMRA
     Route: 048
  9. NEXLETOL [Concomitant]
     Active Substance: BEMPEDOIC ACID
     Indication: Prophylaxis
     Dosage: STARTED BEFORE ACTEMRA
     Route: 048
     Dates: start: 2024
  10. ZINC [Concomitant]
     Active Substance: ZINC
     Dosage: STARTED BEFORE ACTEMRA
     Route: 048
  11. IBUPROFEN [Concomitant]
     Active Substance: IBUPROFEN
     Indication: Inflammation
     Dosage: STARTED BEFORE ACTEMRA
     Route: 048

REACTIONS (3)
  - Wrong technique in product usage process [Unknown]
  - Device defective [Unknown]
  - COVID-19 [Recovered/Resolved]

NARRATIVE: CASE EVENT DATE: 20240925
